FAERS Safety Report 18430519 (Version 2)
Quarter: 2020Q4

REPORT INFORMATION
  Report Type: Spontaneous
  Country: US (occurrence: US)
  Receive Date: 20201027
  Receipt Date: 20201028
  Transmission Date: 20210114
  Serious: Yes (Life-Threatening, Hospitalization, Other)
  Sender: FDA-Public Use
  Company Number: US-ABBVIE-20K-163-3618275-00

PATIENT
  Age: 75 Year
  Sex: Female

DRUGS (4)
  1. VALPROIC ACID. [Suspect]
     Active Substance: VALPROIC ACID
     Indication: BIPOLAR DISORDER
     Dosage: NIGHTLY
     Route: 065
  2. QUETIAPINE. [Concomitant]
     Active Substance: QUETIAPINE
     Indication: PRODUCT USED FOR UNKNOWN INDICATION
  3. VALPROIC ACID. [Suspect]
     Active Substance: VALPROIC ACID
     Indication: PSYCHOTIC DISORDER
  4. VALPROIC ACID. [Suspect]
     Active Substance: VALPROIC ACID
     Indication: MANIA
     Route: 065

REACTIONS (11)
  - Dyspnoea [Recovered/Resolved]
  - Infection [Recovering/Resolving]
  - Respiratory failure [Recovered/Resolved]
  - Blood albumin decreased [Recovering/Resolving]
  - Pneumonia [Recovering/Resolving]
  - Hyperammonaemic encephalopathy [Recovering/Resolving]
  - Mental status changes [Recovering/Resolving]
  - Ammonia increased [Recovered/Resolved]
  - Toxicity to various agents [Recovering/Resolving]
  - Anaemia [Recovering/Resolving]
  - Somnolence [Recovering/Resolving]
